FAERS Safety Report 13780806 (Version 1)
Quarter: 2017Q3

REPORT INFORMATION
  Report Type: Spontaneous
  Country: US (occurrence: US)
  Receive Date: 20170721
  Receipt Date: 20170721
  Transmission Date: 20171127
  Serious: No
  Sender: FDA-Public Use
  Company Number: None

PATIENT
  Age: 32 Year
  Sex: Female
  Weight: 83.25 kg

DRUGS (7)
  1. VITAMIN [Concomitant]
     Active Substance: VITAMINS
  2. REMERON [Concomitant]
     Active Substance: MIRTAZAPINE
  3. CALCIUM [Concomitant]
     Active Substance: CALCIUM
  4. CONTRAVE [Suspect]
     Active Substance: BUPROPION HYDROCHLORIDE\NALTREXONE HYDROCHLORIDE
     Indication: WEIGHT DECREASED
     Dosage: ?          OTHER STRENGTH:MG;QUANTITY:2 TABLET(S);?TWICE A DAY ORAL
     Route: 048
     Dates: start: 20170320, end: 20170721
  5. FISH OIL [Concomitant]
     Active Substance: FISH OIL
  6. TOPIRAMATE. [Concomitant]
     Active Substance: TOPIRAMATE
  7. NUVARING [Concomitant]
     Active Substance: ETHINYL ESTRADIOL\ETONOGESTREL

REACTIONS (2)
  - Liver injury [None]
  - Hepatic enzyme increased [None]

NARRATIVE: CASE EVENT DATE: 20170721
